FAERS Safety Report 9734814 (Version 1)
Quarter: 2013Q4

REPORT INFORMATION
  Report Type: Spontaneous
  Country: IT (occurrence: IT)
  Receive Date: 20131206
  Receipt Date: 20131206
  Transmission Date: 20140711
  Serious: Yes (Other)
  Sender: FDA-Public Use
  Company Number: IT-JNJFOC-20131200066

PATIENT
  Age: 54 Year
  Sex: Female
  Weight: 86 kg

DRUGS (2)
  1. REMICADE [Suspect]
     Indication: COLITIS ULCERATIVE
     Dosage: STRENGTH: 100 MG
     Route: 042
     Dates: start: 20130718, end: 20130829
  2. ASACOL [Concomitant]
     Indication: COLITIS ULCERATIVE
     Dosage: 2.4 GRAMS
     Route: 048
     Dates: start: 1998

REACTIONS (1)
  - Pemphigoid [Recovered/Resolved]
